FAERS Safety Report 22319482 (Version 6)
Quarter: 2024Q1

REPORT INFORMATION
  Report Type: Report from Study
  Country: MX (occurrence: MX)
  Receive Date: 20230515
  Receipt Date: 20240117
  Transmission Date: 20240409
  Serious: Yes (Hospitalization)
  Sender: FDA-Public Use
  Company Number: MX-002147023-NVSC2022MX277561

PATIENT
  Age: 60 Year
  Sex: Female
  Weight: 53 kg

DRUGS (6)
  1. OFATUMUMAB [Suspect]
     Active Substance: OFATUMUMAB
     Indication: Multiple sclerosis
     Dosage: 20 MG, QMO (ON THE LEG)
     Route: 058
     Dates: start: 20221106
  2. OFATUMUMAB [Suspect]
     Active Substance: OFATUMUMAB
     Dosage: 1 DOSAGE FORM (LISY 20MG GLW  0.4ML) (APPLY AT WEEK 0, 2 AND 4. AFTERWARDS APPLY ONCE A MONTH)
     Route: 058
  3. LEXAPRO [Concomitant]
     Active Substance: ESCITALOPRAM OXALATE
     Indication: Antidepressant therapy
     Dosage: 10 MG, QD (IN THE  MORNING,3 YEARS AGO)
     Route: 048
  4. LEVOTHYROXINE [Concomitant]
     Active Substance: LEVOTHYROXINE\LEVOTHYROXINE SODIUM
     Indication: Thyroid disorder
     Dosage: 75 MG, QD (IN THE MORNING)
     Route: 048
     Dates: start: 202211
  5. PANTOPRAZOLE [Concomitant]
     Active Substance: PANTOPRAZOLE
     Indication: Burning sensation
     Dosage: 1 DOSAGE FORM, PRN
     Route: 048
  6. ALIN [Concomitant]
     Indication: Multiple sclerosis relapse
     Dosage: 1 DOSAGE FORM, PRN(BOLUS,1 MONTH AGO
     Route: 048

REACTIONS (22)
  - COVID-19 [Not Recovered/Not Resolved]
  - Pulmonary embolism [Not Recovered/Not Resolved]
  - Dyspnoea [Unknown]
  - Arthralgia [Not Recovered/Not Resolved]
  - Insomnia [Recovered/Resolved]
  - Anxiety [Recovered/Resolved]
  - Restlessness [Recovered/Resolved]
  - Headache [Recovered/Resolved]
  - Fatigue [Recovered/Resolved]
  - Decreased immune responsiveness [Unknown]
  - Temperature intolerance [Unknown]
  - Sensory disturbance [Unknown]
  - Hypoaesthesia [Recovered/Resolved]
  - Listless [Unknown]
  - Injection site pain [Unknown]
  - Fatigue [Recovered/Resolved]
  - Pain in extremity [Recovered/Resolved]
  - Discomfort [Recovered/Resolved]
  - Weight increased [Unknown]
  - Incorrect route of product administration [Recovering/Resolving]
  - Off label use [Not Recovered/Not Resolved]
  - Drug ineffective [Not Recovered/Not Resolved]

NARRATIVE: CASE EVENT DATE: 20221106
